FAERS Safety Report 8041050-6 (Version None)
Quarter: 2012Q1

REPORT INFORMATION
  Report Type: 
  Country: None (occurrence: None)
  Receive Date: 20120112
  Receipt Date: 20120103
  Transmission Date: 20120608
  Serious: Yes (Hospitalization)
  Sender: FDA-Public Use
  Company Number: US-BAYER-2011-061742

PATIENT
  Age: 55 Year
  Sex: Female
  Weight: 76.825 kg

DRUGS (41)
  1. KLONOPIN [Concomitant]
     Indication: PAIN IN JAW
     Dosage: 1 TO 4 MG TWICE TO THREE TIMES DAILY
     Route: 048
     Dates: start: 20011005, end: 20100701
  2. ARMODAFINIL [Concomitant]
     Dosage: 150 MG, UNK
     Route: 048
     Dates: start: 20011018, end: 20090828
  3. TYLENOL W/ CODEINE NO. 3 [Concomitant]
     Indication: COUGH
     Dosage: 1 TO 2 TABLETS EVERY 4 TO 6 HOURS AS NEEDED
     Route: 048
     Dates: start: 20020413, end: 20090928
  4. TRIAMCINOLONE [Concomitant]
     Dosage: UNK UNK, BID
     Route: 061
     Dates: start: 20041230, end: 20100524
  5. ALBUTEROL [Concomitant]
     Indication: ASTHMA
     Dosage: 90 MCG, 2 PUFFS EVERY 4 HOURS TO FOUR TIMES DAILY AS NEEDED
     Route: 055
     Dates: start: 20030624, end: 20100616
  6. MUCINEX [Concomitant]
     Indication: PRODUCTIVE COUGH
     Dosage: 1200 MG, BID
     Route: 048
     Dates: start: 20090610, end: 20100608
  7. LEVOTHYROXINE SODIUM [Concomitant]
     Indication: HYPOTHYROIDISM
     Dosage: 25 TO 50 MCG DAILY
     Route: 048
     Dates: start: 20090731, end: 20100616
  8. DROSPIRENONE AND ETHINYL ESTRADIOL [Suspect]
     Indication: MENSTRUATION IRREGULAR
     Dosage: UNK
     Dates: start: 20090106, end: 20090828
  9. KLONOPIN [Concomitant]
     Indication: EAR PAIN
  10. CYCLOBENZAPRINE [Concomitant]
     Indication: MUSCLE RELAXANT THERAPY
     Dosage: 10TO 30 MG DAILY TO THREE TIMES DAILY
     Route: 048
     Dates: start: 20021231, end: 20090828
  11. SINGULAIR [Concomitant]
     Indication: MULTIPLE ALLERGIES
     Dosage: 10 MG, HS
     Route: 048
     Dates: start: 20021231, end: 20091116
  12. PALGIC [CARBINOXAMINE MALEATE] [Concomitant]
     Indication: MULTIPLE ALLERGIES
     Dosage: 1 TO 4 MG TWICE DAILY
     Route: 048
     Dates: start: 20060313, end: 20090828
  13. DIOVAN [Concomitant]
     Indication: HYPERTENSION
     Dosage: 80 MG, QD
     Route: 048
     Dates: start: 20080918, end: 20090828
  14. CEFTIN [Concomitant]
     Dosage: 500 MG, BID
     Route: 048
     Dates: start: 20090610
  15. ZANAFLEX [Concomitant]
     Indication: MUSCLE SPASTICITY
     Dosage: 4 MG, TID
     Route: 048
     Dates: start: 20090814, end: 20090814
  16. ADDERALL 5 [Concomitant]
     Dosage: 5 TO 10 MG DAILY
     Route: 048
     Dates: start: 20040603, end: 20090828
  17. SYMBICORT [Concomitant]
     Indication: ASTHMA
     Dosage: 80/4.5 MCG
     Route: 055
     Dates: start: 20080723, end: 20100617
  18. CLINDAMYCIN HCL [Concomitant]
     Dosage: UNK
     Dates: start: 20090623, end: 20100525
  19. LEVAQUIN [Concomitant]
     Indication: SINUSITIS
     Dosage: 750 MG, QD
     Route: 048
     Dates: start: 20090724, end: 20090828
  20. ZANAFLEX [Concomitant]
     Indication: MUSCLE RELAXANT THERAPY
  21. BIMATOPROST [Concomitant]
     Indication: MADAROSIS
     Dosage: UNK
     Route: 061
     Dates: start: 20090822, end: 20100122
  22. SKELAXIN [Concomitant]
     Indication: MUSCLE RELAXANT THERAPY
     Dosage: 800 MG, QD
     Route: 048
     Dates: start: 20090826, end: 20091024
  23. NASONEX [Concomitant]
     Indication: MULTIPLE ALLERGIES
     Dosage: 50 MCG, 2 SPRAYS EACH NOSTRIL DAILY
     Route: 045
     Dates: start: 20020323, end: 20100616
  24. AMBIEN [Concomitant]
     Indication: INSOMNIA
     Dosage: 10 TO 12.5 MG AT BEDTIME AS NEEDED
     Route: 048
     Dates: start: 20040219, end: 20090828
  25. MOBIC [Concomitant]
     Dosage: 7.5 TO 15 MG DAILY TO TWICE DAILY
     Route: 048
     Dates: start: 20041217, end: 20090828
  26. RELAFEN [Concomitant]
     Indication: PAIN
     Dosage: 500 MG, PRN
     Route: 048
     Dates: start: 20080812, end: 20090828
  27. METHIMAZOLE [Concomitant]
     Indication: HYPERTHYROIDISM
     Dosage: 5 MG, UNK
     Dates: start: 20090629, end: 20090828
  28. DROSPIRENONE AND ETHINYL ESTRADIOL [Suspect]
     Indication: MENORRHAGIA
  29. SINGULAIR [Concomitant]
     Indication: ASTHMA
  30. GABAPENTIN [Concomitant]
     Indication: NEURALGIA
     Dosage: 600 MG, BID
     Route: 048
     Dates: start: 20070202, end: 20100609
  31. PRILOSEC [Concomitant]
     Indication: GASTROOESOPHAGEAL REFLUX DISEASE
     Dosage: 20 MG TWICE DAILY OR 2 CAPSULES DAILY
     Route: 048
     Dates: start: 20080620, end: 20100512
  32. WELLBUTRIN [Concomitant]
     Indication: DEPRESSION
     Dosage: 100 TO 150 MG DAILY TO TWICE DAILY
     Route: 048
     Dates: start: 20080807, end: 20090828
  33. NEXIUM [Concomitant]
     Indication: GASTROOESOPHAGEAL REFLUX DISEASE
     Dosage: 40 MG, QD
     Route: 048
     Dates: start: 20080929, end: 20100617
  34. ASTEPRO [Concomitant]
     Indication: MULTIPLE ALLERGIES
     Dosage: 137 ?G, UNK
     Route: 045
     Dates: start: 20090217, end: 20100617
  35. KLONOPIN [Concomitant]
     Indication: MUSCLE RELAXANT THERAPY
  36. ALBUTEROL [Concomitant]
     Indication: DYSPNOEA
  37. DOXYCYCLINE [Concomitant]
     Dosage: 100 MG, BID
     Route: 048
     Dates: start: 20050916, end: 20090828
  38. STRATTERA [Concomitant]
     Indication: ATTENTION DEFICIT/HYPERACTIVITY DISORDER
     Dosage: 10 TO 25 MG DAILY
     Route: 048
     Dates: start: 20081205, end: 20100612
  39. VIGAMOX [Concomitant]
     Dosage: UNK
     Route: 047
     Dates: start: 20090727
  40. NUVIGIL [Concomitant]
     Indication: SOMNOLENCE
     Dosage: 150 MG, QD
     Dates: start: 20090818, end: 20090825
  41. ASPIRIN [Concomitant]
     Dosage: 81 MG, QD
     Route: 048
     Dates: start: 20090828

REACTIONS (13)
  - HEART INJURY [None]
  - DYSPNOEA [None]
  - DEPRESSION [None]
  - PULMONARY EMBOLISM [None]
  - DEEP VEIN THROMBOSIS [None]
  - RIGHT VENTRICULAR FAILURE [None]
  - PALPITATIONS [None]
  - MUSCULOSKELETAL CHEST PAIN [None]
  - DIZZINESS [None]
  - FATIGUE [None]
  - EMOTIONAL DISTRESS [None]
  - ANXIETY [None]
  - PAIN IN EXTREMITY [None]
